FAERS Safety Report 8860411 (Version 4)
Quarter: 2013Q1

REPORT INFORMATION
  Report Type: Spontaneous
  Country: US (occurrence: US)
  Receive Date: 20121025
  Receipt Date: 20130311
  Transmission Date: 20140127
  Serious: Yes (Hospitalization)
  Sender: FDA-Public Use
  Company Number: US-009507513-1210USA009992

PATIENT
  Sex: Male

DRUGS (2)
  1. NASONEX [Suspect]
     Indication: SINUS CONGESTION
     Dosage: 2 SPRAYS EACH NOSTRIL ONCE DAILY
     Route: 055
     Dates: start: 20090725
  2. ADVIL [Concomitant]

REACTIONS (3)
  - Spinal fusion surgery [Unknown]
  - Nasal congestion [Not Recovered/Not Resolved]
  - Product quality issue [Unknown]
